FAERS Safety Report 5157262-5 (Version None)
Quarter: 2006Q4

REPORT INFORMATION
  Report Type: 
  Country: None (occurrence: None)
  Receive Date: 20061127
  Receipt Date: 20061123
  Transmission Date: 20070319
  Serious: Yes (Hospitalization)
  Sender: FDA-Public Use
  Company Number: FR-SP-2006-03223

PATIENT
  Age: 55 Year
  Sex: Male

DRUGS (2)
  1. IMMUCYST [Suspect]
     Indication: BLADDER CANCER
     Route: 043
     Dates: start: 20060829, end: 20061003
  2. IMMUCYST [Suspect]
     Route: 043
     Dates: start: 20060829, end: 20061003

REACTIONS (4)
  - ARTHRALGIA [None]
  - ARTHRITIS [None]
  - INFLAMMATION [None]
  - PYREXIA [None]
